FAERS Safety Report 6614932-7 (Version None)
Quarter: 2010Q1

REPORT INFORMATION
  Report Type: 
  Country: None (occurrence: None)
  Receive Date: 20100305
  Receipt Date: 20100226
  Transmission Date: 20100710
  Serious: Yes (Hospitalization)
  Sender: FDA-Public Use
  Company Number: CA-WYE-G05658810

PATIENT
  Age: 35 Year
  Sex: Female

DRUGS (1)
  1. EFFEXOR XR [Suspect]
     Dosage: UNKNOWN
     Route: 048

REACTIONS (4)
  - GASTROINTESTINAL OEDEMA [None]
  - HYPERSENSITIVITY [None]
  - OESOPHAGEAL OEDEMA [None]
  - URTICARIA [None]
